FAERS Safety Report 6824858-1 (Version None)
Quarter: 2010Q3

REPORT INFORMATION
  Report Type: 
  Country: None (occurrence: None)
  Receive Date: 20100708
  Receipt Date: 20061213
  Transmission Date: 20110219
  Serious: No
  Sender: FDA-Public Use
  Company Number: US-PFIZER INC-2006154091

PATIENT
  Sex: Female
  Weight: 68.95 kg

DRUGS (7)
  1. CHANTIX [Suspect]
     Indication: SMOKING CESSATION THERAPY
     Dates: start: 20061103
  2. METFORMIN HCL [Concomitant]
  3. LISINOPRIL [Concomitant]
  4. ACTONEL [Concomitant]
  5. CLORAZEPATE DIPOTASSIUM [Concomitant]
  6. ZOCOR [Concomitant]
  7. VITAMINS [Concomitant]

REACTIONS (3)
  - ANXIETY [None]
  - NAUSEA [None]
  - WEIGHT DECREASED [None]
